FAERS Safety Report 6414612-7 (Version None)
Quarter: 2009Q4

REPORT INFORMATION
  Report Type: 
  Country: None (occurrence: None)
  Receive Date: 20091026
  Receipt Date: 20091014
  Transmission Date: 20100525
  Serious: Yes (Other)
  Sender: FDA-Public Use
  Company Number: US-JNJCH-2009027294

PATIENT
  Age: 14 Year
  Sex: Female
  Weight: 61.2 kg

DRUGS (3)
  1. SUDAFED PE SINUS AND ALLERGY [Suspect]
     Indication: NASOPHARYNGITIS
     Dosage: TEXT:ONE TABLET ONCE A DAY
     Route: 048
  2. SUDAFED PE SINUS AND ALLERGY [Suspect]
     Indication: HYPERSENSITIVITY
  3. REGLAN [Concomitant]
     Indication: HEADACHE
     Route: 065

REACTIONS (2)
  - AMNESIA [None]
  - INCOHERENT [None]
